FAERS Safety Report 12402621 (Version 5)
Quarter: 2020Q3

REPORT INFORMATION
  Report Type: Spontaneous
  Country: FR (occurrence: US)
  Receive Date: 20160525
  Receipt Date: 20200717
  Transmission Date: 20201102
  Serious: Yes (Congenital Anomaly, Other)
  Sender: FDA-Public Use
  Company Number: FR-ABBVIE-16P-056-1635251-00

PATIENT
  Sex: Male

DRUGS (1)
  1. DEPAKINE CHRONO [Suspect]
     Active Substance: VALPROATE SODIUM
     Indication: MATERNAL EXPOSURE TIMING UNSPECIFIED
     Route: 064

REACTIONS (18)
  - Behaviour disorder [Unknown]
  - Dysplasia [Unknown]
  - Craniosynostosis [Unknown]
  - Cyst [Unknown]
  - Congenital genital malformation [Unknown]
  - Congenital jaw malformation [Unknown]
  - Psychomotor retardation [Unknown]
  - Nasal disorder [Unknown]
  - Dysmorphism [Unknown]
  - Aphasia [Unknown]
  - Language disorder [Unknown]
  - Dysgraphia [Unknown]
  - Ear disorder [Unknown]
  - Skull malformation [Unknown]
  - Pharyngeal disorder [Unknown]
  - Visual impairment [Unknown]
  - Learning disorder [Unknown]
  - Foetal exposure during pregnancy [Unknown]
